FAERS Safety Report 9944108 (Version 1)
Quarter: 2014Q1

REPORT INFORMATION
  Report Type: Spontaneous
  Country: US (occurrence: US)
  Receive Date: 20140303
  Receipt Date: 20140303
  Transmission Date: 20141002
  Serious: Yes (Other)
  Sender: FDA-Public Use
  Company Number: US-GE HEALTHCARE MEDICAL DIAGNOSTICS-OSCN-PR-0912S-0519

PATIENT
  Sex: Male

DRUGS (8)
  1. OMNISCAN [Suspect]
     Indication: PRODUCT USED FOR UNKNOWN INDICATION
     Route: 042
     Dates: start: 20040824, end: 20040824
  2. OMNISCAN [Suspect]
     Route: 042
     Dates: start: 20060509, end: 20060509
  3. MAGNEVIST [Suspect]
     Indication: PRODUCT USED FOR UNKNOWN INDICATION
     Dates: start: 20061215, end: 20061215
  4. MAGNEVIST [Suspect]
     Dosage: UNSPECIFIED
     Dates: start: 20070123, end: 20070123
  5. MAGNEVIST [Suspect]
     Dosage: UNSPECIFIED
     Dates: start: 20070224, end: 20070224
  6. MAGNEVIST [Suspect]
     Dosage: UNSPECIFIED
     Dates: start: 20040916, end: 20040916
  7. MAGNEVIST [Suspect]
     Dosage: UNSPECIFIED
     Dates: start: 20050223, end: 20050223
  8. MAGNEVIST [Suspect]
     Dates: start: 20060505, end: 20060505

REACTIONS (1)
  - Nephrogenic systemic fibrosis [Not Recovered/Not Resolved]
